FAERS Safety Report 6707038-X (Version None)
Quarter: 2010Q2

REPORT INFORMATION
  Report Type: 
  Country: None (occurrence: None)
  Receive Date: 20100503
  Receipt Date: 20100421
  Transmission Date: 20101027
  Serious: Yes (Other)
  Sender: FDA-Public Use
  Company Number: PHHY2010JP25608

PATIENT
  Age: 26 Year
  Sex: Female

DRUGS (2)
  1. CYCLOSPORINE [Suspect]
     Indication: LIVER TRANSPLANT
     Route: 048
  2. PREDNISOLONE [Concomitant]
     Indication: LIVER TRANSPLANT
     Route: 048

REACTIONS (3)
  - DEPRESSION [None]
  - HALLUCINATION, AUDITORY [None]
  - SCHIZOPHRENIA [None]
